FAERS Safety Report 6063650-5 (Version None)
Quarter: 2009Q1

REPORT INFORMATION
  Report Type: 
  Country: None (occurrence: None)
  Receive Date: 20090129
  Receipt Date: 20090113
  Transmission Date: 20090719
  Serious: Yes (Hospitalization)
  Sender: FDA-Public Use
  Company Number: KV200800960

PATIENT
  Age: 68 Year
  Sex: Male

DRUGS (6)
  1. ISOSORBIDE MONONITRATE(ISOSORBIDE MONONITRATE) SLOW RELEASE [Suspect]
     Indication: CARDIAC DISORDER
     Dosage: 60 MG, BID, ORAL
     Route: 048
     Dates: start: 20030101, end: 20081001
  2. TOPROL-XL [Concomitant]
  3. AVAPRO [Concomitant]
  4. WARFARIN SODIUM [Concomitant]
  5. DIURETICS [Concomitant]
  6. VYTORIN [Concomitant]

REACTIONS (5)
  - ASTHENIA [None]
  - BLOOD PRESSURE DECREASED [None]
  - DIZZINESS [None]
  - PRODUCT QUALITY ISSUE [None]
  - TACHYCARDIA [None]
